FAERS Safety Report 4416532-6 (Version None)
Quarter: 2004Q3

REPORT INFORMATION
  Report Type: 
  Country: None (occurrence: None)
  Receive Date: 20040802
  Receipt Date: 20040716
  Transmission Date: 20050211
  Serious: Yes (Other)
  Sender: FDA-Public Use
  Company Number: 238095

PATIENT
  Age: 51 Year
  Sex: Female
  Weight: 62 kg

DRUGS (2)
  1. ACTIVELLE (NORETHISTERONE ACETATE, ESTRADIOL HEMIHYDRATE) FILM-COATED [Suspect]
     Indication: MENOPAUSE
     Dates: start: 20040615, end: 20040626
  2. RAMIPRIL [Concomitant]

REACTIONS (1)
  - DERMATITIS ALLERGIC [None]
